FAERS Safety Report 13342808 (Version 3)
Quarter: 2017Q2

REPORT INFORMATION
  Report Type: Spontaneous
  Country: JP (occurrence: JP)
  Receive Date: 20170316
  Receipt Date: 20170419
  Transmission Date: 20170830
  Serious: Yes (Life-Threatening)
  Sender: FDA-Public Use
  Company Number: JP-BIOCRYST PHARMACEUTICALS, INC.-2017BCR00080

PATIENT
  Age: 94 Year
  Sex: Female

DRUGS (15)
  1. TAMIFLU [Concomitant]
     Active Substance: OSELTAMIVIR PHOSPHATE
     Indication: ANTIVIRAL PROPHYLAXIS
     Dosage: 1 DOSAGE UNITS, 1X/DAY
     Route: 048
     Dates: start: 20170211, end: 20170217
  2. POTACOL-R [Concomitant]
     Dosage: UNK
     Route: 042
     Dates: start: 20170217
  3. SOLU-MEDROL [Concomitant]
     Active Substance: METHYLPREDNISOLONE SODIUM SUCCINATE
     Dosage: UNK
     Dates: start: 20170217
  4. BFLUID [Concomitant]
     Active Substance: AMINO ACIDS\DEXTROSE\ELECTROLYTES NOS\VITAMINS
     Dosage: UNK
     Route: 042
     Dates: start: 20170217
  5. METGLUCO [Concomitant]
     Active Substance: METFORMIN HYDROCHLORIDE
     Indication: DIABETES MELLITUS
     Dosage: 500 MG, 1X/DAY
     Route: 048
  6. ACTOS [Concomitant]
     Active Substance: PIOGLITAZONE HYDROCHLORIDE
     Indication: DIABETES MELLITUS
     Dosage: 30 MG, 1X/DAY
     Route: 048
  7. GAMMA-GLOBULIN [Concomitant]
     Active Substance: IMMUNE GLOBULIN NOS
     Dosage: UNK
     Dates: start: 20170217
  8. IMIPENEM HYDRATE/CILASTATIN SODIUM [Concomitant]
     Dosage: UNK
     Dates: start: 20170217
  9. RAPIACTA [Suspect]
     Active Substance: PERAMIVIR
     Indication: INFLUENZA
     Dosage: UNK, UNK
     Route: 042
     Dates: start: 20170217, end: 20170217
  10. JANUVIA [Concomitant]
     Active Substance: SITAGLIPTIN PHOSPHATE
     Indication: DIABETES MELLITUS
     Dosage: 100 MG, 1X/DAY
     Route: 048
  11. POTACOL-R [Concomitant]
     Dosage: UNK
     Dates: start: 20170227
  12. FOSMICIN [Concomitant]
     Active Substance: FOSFOMYCIN CALCIUM
     Dosage: UNK
     Dates: start: 20170224
  13. GLUCOSE [Concomitant]
     Active Substance: DEXTROSE
     Route: 042
  14. ASPARA K [Concomitant]
     Active Substance: POTASSIUM ASPARTATE
     Route: 042
  15. TULOBUTEROL [Concomitant]
     Active Substance: TULOBUTEROL
     Indication: BRONCHITIS
     Dosage: UNK
     Dates: start: 20170215

REACTIONS (2)
  - Blood potassium decreased [Recovered/Resolved]
  - Blood sodium increased [Unknown]

NARRATIVE: CASE EVENT DATE: 20170227
